FAERS Safety Report 26012915 (Version 1)
Quarter: 2025Q4

REPORT INFORMATION
  Report Type: Spontaneous
  Country: US (occurrence: US)
  Receive Date: 20251107
  Receipt Date: 20251107
  Transmission Date: 20260117
  Serious: No
  Sender: SANOFI AVENTIS
  Company Number: US-SA-2025SA298113

PATIENT
  Age: 21 Year
  Sex: Male

DRUGS (5)
  1. DUPIXENT [Suspect]
     Active Substance: DUPILUMAB
     Indication: Eosinophilic oesophagitis
     Dosage: 300 MG, QOW
     Route: 058
     Dates: start: 20250327
  2. MAXALT [Concomitant]
     Active Substance: RIZATRIPTAN BENZOATE
  3. NURTEC ODT [Concomitant]
     Active Substance: RIMEGEPANT SULFATE
  4. ONDANSETRON [Concomitant]
     Active Substance: ONDANSETRON
  5. ZOLOFT [Concomitant]
     Active Substance: SERTRALINE HYDROCHLORIDE

REACTIONS (1)
  - Anxiety [Unknown]

NARRATIVE: CASE EVENT DATE: 20250101
